FAERS Safety Report 14227470 (Version 1)
Quarter: 2017Q4

REPORT INFORMATION
  Report Type: Spontaneous
  Country: FR (occurrence: FR)
  Receive Date: 20171127
  Receipt Date: 20171127
  Transmission Date: 20180321
  Serious: Yes (Hospitalization)
  Sender: FDA-Public Use
  Company Number: FR-B. BRAUN MEDICAL INC.-2036060

PATIENT
  Age: 78 Year
  Sex: Male

DRUGS (2)
  1. METRONIDAZOLE. [Suspect]
     Active Substance: METRONIDAZOLE
     Route: 042
     Dates: start: 20160907, end: 20160910
  2. ZOVIRAX [Suspect]
     Active Substance: ACYCLOVIR
     Route: 042
     Dates: start: 20160902, end: 20160911

REACTIONS (1)
  - Thrombocytopenia [None]
